FAERS Safety Report 7003300-4 (Version None)
Quarter: 2010Q3

REPORT INFORMATION
  Report Type: 
  Country: None (occurrence: None)
  Receive Date: 20100920
  Receipt Date: 20100907
  Transmission Date: 20110219
  Serious: Yes (Hospitalization)
  Sender: FDA-Public Use
  Company Number: JP-ELI_LILLY_AND_COMPANY-JP201009001985

PATIENT
  Age: 41 Year
  Sex: Female

DRUGS (4)
  1. CYMBALTA [Suspect]
     Indication: DEPRESSION
     Dosage: 60 MG, DAILY (1/D)
     Route: 048
     Dates: start: 20100731, end: 20100902
  2. PAXIL [Concomitant]
     Indication: DEPRESSION
     Dosage: 20 MG, DAILY (1/D)
     Route: 048
  3. SILECE [Concomitant]
     Dosage: 1 MG, DAILY (1/D)
     Route: 048
  4. MEILAX [Concomitant]
     Indication: DEPRESSION
     Dosage: 1 MG, DAILY (1/D)
     Route: 048

REACTIONS (1)
  - HEPATIC FUNCTION ABNORMAL [None]
